FAERS Safety Report 7970802-3 (Version None)
Quarter: 2011Q4

REPORT INFORMATION
  Report Type: 
  Country: None (occurrence: None)
  Receive Date: 20111212
  Receipt Date: 20111205
  Transmission Date: 20120403
  Serious: Yes (Disabling)
  Sender: FDA-Public Use
  Company Number: PHHY2011AU101965

PATIENT
  Sex: Male
  Weight: 60 kg

DRUGS (5)
  1. PERINDOPRIL ERBUMINE [Concomitant]
     Indication: HYPERTENSION
     Dosage: 10 MG, UNK
     Route: 048
  2. VITAMIN D [Concomitant]
     Indication: PROPHYLAXIS
     Dosage: 25 UG, UNK
     Dates: start: 20110201
  3. GLUCOSAMINE [Concomitant]
     Indication: PROPHYLAXIS
     Dosage: 25 MG, UNK
  4. ZOLEDRONOC ACID [Suspect]
     Indication: OSTEOPOROSIS
     Dosage: 5 MG
     Route: 042
     Dates: start: 20111113
  5. CRESTOR [Concomitant]
     Dosage: 10 MG, UNK

REACTIONS (11)
  - CHEST PAIN [None]
  - GOUT [None]
  - PAIN IN EXTREMITY [None]
  - HEAD DISCOMFORT [None]
  - ARTHRALGIA [None]
  - NECK PAIN [None]
  - CHILLS [None]
  - FEELING ABNORMAL [None]
  - OEDEMA PERIPHERAL [None]
  - FATIGUE [None]
  - JOINT SWELLING [None]
